FAERS Safety Report 7969431-7 (Version None)
Quarter: 2011Q4

REPORT INFORMATION
  Report Type: 
  Country: None (occurrence: None)
  Receive Date: 20111212
  Receipt Date: 20111202
  Transmission Date: 20120403
  Serious: Yes (Hospitalization)
  Sender: FDA-Public Use
  Company Number: JP-BRISTOL-MYERS SQUIBB COMPANY-16279648

PATIENT
  Age: 65 Year
  Sex: Male
  Weight: 62 kg

DRUGS (8)
  1. LENDORMIN [Concomitant]
     Dosage: LENDORMIN D TAB
  2. CAMPTOSAR [Suspect]
     Indication: RECTAL CANCER
     Route: 041
     Dates: start: 20110929, end: 20110929
  3. LOXOPROFEN [Concomitant]
     Dosage: TAB
  4. MINOCYCLINE HCL [Concomitant]
     Dosage: CAP
  5. LEVOLEUCOVORIN CALCIUM [Suspect]
     Indication: RECTAL CANCER
     Route: 041
     Dates: start: 20110929, end: 20110929
  6. FLUOROURACIL [Suspect]
     Indication: RECTAL CANCER
     Dosage: 3500 MG 29SEP-30SEP11:IV DRIP
     Route: 040
     Dates: start: 20110929, end: 20110930
  7. ERBITUX [Suspect]
     Indication: RECTAL CANCER
     Route: 042
     Dates: start: 20110929, end: 20110929
  8. LOCOID [Concomitant]

REACTIONS (1)
  - LIVER DISORDER [None]
